FAERS Safety Report 21368269 (Version 1)
Quarter: 2022Q3

REPORT INFORMATION
  Report Type: Spontaneous
  Country: FR (occurrence: FR)
  Receive Date: 20220923
  Receipt Date: 20220923
  Transmission Date: 20221027
  Serious: Yes (Hospitalization)
  Sender: FDA-Public Use
  Company Number: None

PATIENT
  Age: 44 Year
  Sex: Female
  Weight: 99 kg

DRUGS (3)
  1. ARIPIPRAZOLE [Suspect]
     Active Substance: ARIPIPRAZOLE
     Indication: Bipolar disorder
     Dosage: UNIT DOSE: 15 MG, FREQUENCY TIME- 1 DAY, START DATE: NOT ASKED
     Dates: end: 20220803
  2. LAMOTRIGINE [Suspect]
     Active Substance: LAMOTRIGINE
     Indication: Bipolar disorder
     Dosage: UNIT DOSE: 200 MG, FREQUENCY TIME- 1 DAY, DURATION-64 DAYS
     Dates: start: 20220531, end: 20220803
  3. LEVOTHYROXINE [Concomitant]
     Active Substance: LEVOTHYROXINE
     Indication: Hypothyroidism
     Dosage: FORM STRENGTH 125 MICROGRAMS, SCORED TABLET, UNIT DOSE: 1 DF, FREQUENCY TIME- 1 DAY, THERAPY START D

REACTIONS (3)
  - Hepatitis cholestatic [Recovered/Resolved]
  - Cholangitis [Recovering/Resolving]
  - Rash macular [Recovered/Resolved]

NARRATIVE: CASE EVENT DATE: 20220801
